FAERS Safety Report 8960068 (Version 2)
Quarter: 2013Q1

REPORT INFORMATION
  Report Type: Report from Study
  Country: US (occurrence: US)
  Receive Date: 20121211
  Receipt Date: 20130115
  Transmission Date: 20140127
  Serious: Yes (Death, Other)
  Sender: FDA-Public Use
  Company Number: US-ABBOTT-12P-163-1020871-00

PATIENT
  Age: 61 Year
  Sex: Male
  Weight: 113.5 kg

DRUGS (3)
  1. HUMIRA [Suspect]
     Indication: PSORIASIS
     Route: 058
     Dates: start: 200908, end: 201207
  2. CHEMOTHEAPY [Suspect]
     Indication: PRODUCT USED FOR UNKNOWN INDICATION
  3. AGENT ORANGE [Suspect]
     Indication: PRODUCT USED FOR UNKNOWN INDICATION

REACTIONS (3)
  - Death [Fatal]
  - Plasma cell myeloma [Unknown]
  - Pancreatic carcinoma [Unknown]
